FAERS Safety Report 26001569 (Version 1)
Quarter: 2025Q4

REPORT INFORMATION
  Report Type: Spontaneous
  Country: US (occurrence: US)
  Receive Date: 20251105
  Receipt Date: 20251105
  Transmission Date: 20260118
  Serious: No
  Sender: PRASCO
  Company Number: US-Prasco Laboratories-PRAS20250370

PATIENT
  Age: 70 Year
  Sex: Female

DRUGS (2)
  1. ESTRADIOL [Suspect]
     Active Substance: ESTRADIOL
     Indication: Product used for unknown indication
     Route: 067
  2. ESTRADIOL [Suspect]
     Active Substance: ESTRADIOL
     Dosage: 1 GRAM DOSES
     Route: 067

REACTIONS (4)
  - Diarrhoea [Unknown]
  - Vaginal haemorrhage [Unknown]
  - Vaginal discharge [Unknown]
  - Endometriosis [Not Recovered/Not Resolved]
